FAERS Safety Report 8076263-0 (Version None)
Quarter: 2012Q1

REPORT INFORMATION
  Report Type: 
  Country: None (occurrence: None)
  Receive Date: 20120123
  Receipt Date: 20120117
  Transmission Date: 20120608
  Serious: Yes (Hospitalization, Disabling, Other)
  Sender: FDA-Public Use
  Company Number: 2010SP045172

PATIENT
  Age: 46 Year
  Sex: Female
  Weight: 70.3075 kg

DRUGS (1)
  1. NUVARING [Suspect]
     Indication: CONTRACEPTION
     Dates: start: 20070601, end: 20080825

REACTIONS (12)
  - ELECTROCARDIOGRAM ST SEGMENT ABNORMAL [None]
  - LUNG NEOPLASM [None]
  - HEADACHE [None]
  - HEPATIC CYST [None]
  - PULMONARY EMBOLISM [None]
  - PALPITATIONS [None]
  - ELECTROCARDIOGRAM Q WAVES [None]
  - ANXIETY [None]
  - STRESS [None]
  - SINUS TACHYCARDIA [None]
  - IMPAIRED WORK ABILITY [None]
  - FATIGUE [None]
